FAERS Safety Report 16909861 (Version 1)
Quarter: 2019Q4

REPORT INFORMATION
  Report Type: Spontaneous
  Country: US (occurrence: US)
  Receive Date: 20191011
  Receipt Date: 20191011
  Transmission Date: 20200122
  Serious: No
  Sender: FDA-Public Use
  Company Number: None

PATIENT
  Sex: Female

DRUGS (4)
  1. LEVOTHYROXINE TAB 0.075MG [Concomitant]
  2. WIXELA INHUB [Suspect]
     Active Substance: FLUTICASONE PROPIONATE\SALMETEROL XINAFOATE
     Route: 055
     Dates: start: 20190429
  3. LISINOPRIL   TAB 40MG [Concomitant]
  4. HYDROCHLOROTHIAZ TAB 12.5MG [Concomitant]

REACTIONS (2)
  - Oral mucosal eruption [None]
  - Drug hypersensitivity [None]
